FAERS Safety Report 4895180-8 (Version None)
Quarter: 2006Q1

REPORT INFORMATION
  Report Type: 
  Country: None (occurrence: None)
  Receive Date: 20060130
  Receipt Date: 20060117
  Transmission Date: 20060701
  Serious: Yes (Other)
  Sender: FDA-Public Use
  Company Number: DE-JNJFOC-20060103843

PATIENT

DRUGS (2)
  1. RISPERDAL [Suspect]
     Route: 064
  2. QUILONUM [Concomitant]
     Indication: DRUG USE FOR UNKNOWN INDICATION
     Dosage: TABLETS= DOSE
     Route: 064

REACTIONS (1)
  - FOETAL DISORDER [None]
